FAERS Safety Report 19938017 (Version 1)
Quarter: 2021Q4

REPORT INFORMATION
  Report Type: Spontaneous
  Country: US (occurrence: US)
  Receive Date: 20211011
  Receipt Date: 20211011
  Transmission Date: 20220303
  Serious: No
  Sender: FDA-Public Use
  Company Number: US-ROCHE-2726224

PATIENT
  Age: 74 Year
  Sex: Female

DRUGS (2)
  1. ZELBORAF [Suspect]
     Active Substance: VEMURAFENIB
     Indication: Metastasis
     Route: 048
     Dates: start: 20201109
  2. COTELLIC [Suspect]
     Active Substance: COBIMETINIB
     Indication: Metastasis
     Route: 048
     Dates: start: 20201109

REACTIONS (4)
  - Intentional product use issue [Unknown]
  - Off label use [Unknown]
  - Myalgia [Unknown]
  - Asthenia [Unknown]

NARRATIVE: CASE EVENT DATE: 20201109
